FAERS Safety Report 24664305 (Version 1)
Quarter: 2024Q4

REPORT INFORMATION
  Report Type: Spontaneous
  Country: US (occurrence: None)
  Receive Date: 20241125
  Receipt Date: 20241125
  Transmission Date: 20250115
  Serious: Yes (Hospitalization)
  Sender: Public
  Company Number: None

PATIENT
  Age: 75 Year
  Sex: Female

DRUGS (2)
  1. CYCLOSPORINE MODIFIED [Suspect]
     Active Substance: CYCLOSPORINE
     Indication: Renal transplant
     Dosage: OTHER QUANTITY : 75 MG AM, 50 MG PM;?FREQUENCY : TWICE A DAY;?
     Route: 048
     Dates: start: 2011
  2. MYCOPHENOLIC ACID [Suspect]
     Active Substance: MYCOPHENOLIC ACID
     Dosage: OTHER QUANTITY : 360 MG AM, 180 MG PM;?FREQUENCY : TWICE A DAY;?
     Route: 048
     Dates: start: 2011

REACTIONS (3)
  - Urinary tract infection [None]
  - Drug ineffective [None]
  - Asthenia [None]

NARRATIVE: CASE EVENT DATE: 20241101
